FAERS Safety Report 22714101 (Version 4)
Quarter: 2023Q4

REPORT INFORMATION
  Report Type: Spontaneous
  Country: JP (occurrence: JP)
  Receive Date: 20230718
  Receipt Date: 20231101
  Transmission Date: 20240110
  Serious: Yes (Other)
  Sender: FDA-Public Use
  Company Number: JP-KYOWAKIRIN-2023AKK010885

PATIENT
  Age: 85 Year
  Sex: Male

DRUGS (1)
  1. DARBEPOETIN ALFA [Suspect]
     Active Substance: DARBEPOETIN ALFA
     Indication: Myelodysplastic syndrome
     Dosage: 120 UG, 1X/4 WEEKS
     Route: 058

REACTIONS (2)
  - Product use issue [Unknown]
  - Aplasia pure red cell [Unknown]
